FAERS Safety Report 9549113 (Version 2)
Quarter: 2014Q3

REPORT INFORMATION
  Report Type: Spontaneous
  Country: US (occurrence: US)
  Receive Date: 20130924
  Receipt Date: 20140826
  Transmission Date: 20150326
  Serious: Yes (Hospitalization, Other)
  Sender: FDA-Public Use
  Company Number: US-009507513-1309USA008169

PATIENT
  Sex: Female
  Weight: 96.6 kg

DRUGS (1)
  1. NUVARING [Suspect]
     Active Substance: ETHINYL ESTRADIOL\ETONOGESTREL
     Indication: CONTRACEPTION
     Dosage: UNK, USE AS DIRECTED
     Route: 067
     Dates: start: 20040819, end: 20090105

REACTIONS (9)
  - Ligament rupture [Unknown]
  - Vena cava filter insertion [Unknown]
  - Pulmonary embolism [Unknown]
  - Knee operation [Unknown]
  - Aspiration pleural cavity [Unknown]
  - Vomiting [Unknown]
  - Nausea [Unknown]
  - Deep vein thrombosis [Unknown]
  - Pleural effusion [Unknown]

NARRATIVE: CASE EVENT DATE: 200901
